FAERS Safety Report 9715038 (Version 1)
Quarter: 2013Q4

REPORT INFORMATION
  Report Type: Spontaneous
  Country: US (occurrence: US)
  Receive Date: 20131126
  Receipt Date: 20131126
  Transmission Date: 20140711
  Serious: Yes (Hospitalization, Other)
  Sender: FDA-Public Use
  Company Number: US-NOVEN-13US007814

PATIENT
  Age: 65 Year
  Sex: Female

DRUGS (2)
  1. MINIVELLE [Suspect]
     Indication: HOT FLUSH
     Dosage: 0.1 MG/DAY, TWICE WEEKLY
     Route: 062
     Dates: start: 201301
  2. ALBUTEROL                          /00139501/ [Concomitant]
     Indication: ASTHMA
     Dosage: UNK
     Route: 055

REACTIONS (2)
  - Hypertension [Not Recovered/Not Resolved]
  - Pain [Not Recovered/Not Resolved]
